FAERS Safety Report 15003632 (Version 1)
Quarter: 2018Q2

REPORT INFORMATION
  Report Type: Spontaneous
  Country: US (occurrence: US)
  Receive Date: 20180613
  Receipt Date: 20180613
  Transmission Date: 20180711
  Serious: No
  Sender: FDA-Public Use
  Company Number: US-TEVA-2018-US-902718

PATIENT

DRUGS (1)
  1. ALPRAZOLAM EXTENDED RELEASE [Suspect]
     Active Substance: ALPRAZOLAM
     Route: 065

REACTIONS (3)
  - Product supply issue [Unknown]
  - Therapeutic response unexpected [Unknown]
  - Product packaging quantity issue [Unknown]
